FAERS Safety Report 7488513-X (Version None)
Quarter: 2011Q2

REPORT INFORMATION
  Report Type: 
  Country: None (occurrence: None)
  Receive Date: 20110518
  Receipt Date: 20110504
  Transmission Date: 20111010
  Serious: Yes (Hospitalization, Other)
  Sender: FDA-Public Use
  Company Number: ES-JNJFOC-20100207404

PATIENT
  Sex: Female
  Weight: 79.5 kg

DRUGS (8)
  1. TUBERCULOSIS MEDICATIONS [Concomitant]
  2. SULFASALAZINE [Concomitant]
     Indication: CROHN'S DISEASE
  3. ANTIBIOTICS [Concomitant]
     Indication: CROHN'S DISEASE
  4. AZATHIOPRINE [Concomitant]
     Indication: CROHN'S DISEASE
  5. CORTICOSTEROIDS [Concomitant]
     Indication: CROHN'S DISEASE
  6. REMICADE [Suspect]
     Indication: CROHN'S DISEASE
     Dosage: DOSE 400 MG; TOTAL 14 DOSES ADMINISTERED
     Route: 042
     Dates: start: 20070625
  7. REMICADE [Suspect]
     Dosage: DOSE 400 MG; TOTAL 14 DOSES ADMINISTERED
     Route: 042
     Dates: start: 20090423
  8. ADALIMUMAB [Concomitant]
     Indication: CROHN'S DISEASE

REACTIONS (2)
  - DRUG EXPOSURE BEFORE PREGNANCY [None]
  - HOSPITALISATION [None]
